FAERS Safety Report 5588893-6 (Version None)
Quarter: 2008Q1

REPORT INFORMATION
  Report Type: 
  Country: None (occurrence: None)
  Receive Date: 20080111
  Receipt Date: 20080103
  Transmission Date: 20080703
  Serious: Yes (Hospitalization)
  Sender: FDA-Public Use
  Company Number: DK-ABBOTT-07P-044-0423491-00

PATIENT
  Sex: Female
  Weight: 85.5 kg

DRUGS (12)
  1. HUMIRA [Suspect]
     Indication: RHEUMATOID ARTHRITIS
     Route: 058
     Dates: start: 20070420, end: 20070727
  2. HUMIRA [Suspect]
     Route: 058
     Dates: start: 20070820, end: 20071004
  3. PANTOPRAZOLE SODIUM [Concomitant]
     Indication: GASTRIC PH DECREASED
     Route: 048
  4. FUROSEMIDE [Concomitant]
     Indication: DIURETIC THERAPY
     Route: 048
  5. UNIKALK [Concomitant]
     Indication: MINERAL SUPPLEMENTATION
     Route: 048
  6. BI PREDONIUM [Concomitant]
     Indication: CARDIAC DISORDER
     Route: 048
  7. ESTRADIOL [Concomitant]
     Indication: OESTROGEN THERAPY
     Route: 048
  8. LEVOTHYROXINE SODIUM [Concomitant]
     Indication: METABOLIC DISORDER
     Route: 048
  9. THIAMAZOLE [Concomitant]
     Indication: METABOLIC DISORDER
     Route: 048
  10. PARACETAMOL [Concomitant]
     Indication: DRUG USE FOR UNKNOWN INDICATION
     Route: 048
  11. ALPRAZOLAM [Concomitant]
     Indication: DRUG USE FOR UNKNOWN INDICATION
     Route: 048
  12. PAROXETINE [Concomitant]
     Indication: DEPRESSION
     Route: 048

REACTIONS (15)
  - ANXIETY [None]
  - ATRIAL FIBRILLATION [None]
  - BRONCHOSPASM [None]
  - C-REACTIVE PROTEIN INCREASED [None]
  - DIARRHOEA [None]
  - EYE INFLAMMATION [None]
  - NODULE [None]
  - ORAL FUNGAL INFECTION [None]
  - PERICARDITIS [None]
  - PHARYNGEAL INFLAMMATION [None]
  - PHARYNGOLARYNGEAL PAIN [None]
  - PNEUMONIA [None]
  - POLYSEROSITIS [None]
  - PYREXIA [None]
  - RALES [None]
